FAERS Safety Report 5626135-3 (Version None)
Quarter: 2008Q1

REPORT INFORMATION
  Report Type: 
  Country: None (occurrence: None)
  Receive Date: 20080214
  Receipt Date: 20080206
  Transmission Date: 20080703
  Serious: Yes (Other)
  Sender: FDA-Public Use
  Company Number: GB-ASTRAZENECA-2008GB00229

PATIENT
  Age: 26760 Day
  Sex: Female
  Weight: 73 kg

DRUGS (5)
  1. ARIMIDEX [Suspect]
     Indication: BREAST CANCER
     Route: 048
     Dates: start: 19981207, end: 20040108
  2. NOLVADEX [Suspect]
     Indication: BREAST CANCER
     Route: 048
     Dates: start: 19981207, end: 20040108
  3. LEVOTHYROXINE SODIUM [Concomitant]
  4. SYMBICORT [Concomitant]
     Route: 055
  5. VENTOLIN [Concomitant]
     Route: 055

REACTIONS (1)
  - HERPES ZOSTER [None]
